FAERS Safety Report 5396652-2 (Version None)
Quarter: 2007Q3

REPORT INFORMATION
  Report Type: 
  Country: None (occurrence: None)
  Receive Date: 20070725
  Receipt Date: 20070717
  Transmission Date: 20080115
  Serious: Yes (Hospitalization)
  Sender: FDA-Public Use
  Company Number: B0473492B

PATIENT
  Age: 51 Year
  Sex: Female

DRUGS (15)
  1. LAPATINIB [Suspect]
     Dosage: 1250MG PER DAY
     Route: 048
     Dates: start: 20070321
  2. CAPECITABINE [Suspect]
     Dosage: 1500MG PER DAY
     Route: 048
     Dates: start: 20040908
  3. COLOXYL 1/2 SENNA [Concomitant]
     Dosage: 2TAB TWICE PER DAY
  4. LACTULOSE [Concomitant]
     Dosage: 20ML TWICE PER DAY
  5. DEXAMETHASONE 0.5MG TAB [Concomitant]
  6. ENOXAPARIN SODIUM [Concomitant]
     Dosage: 100MG PER DAY
  7. OXYCODONE HCL [Concomitant]
     Dosage: 5MG PER DAY
  8. ESOMEPRAZOLE MAGNESIUM [Concomitant]
     Dosage: 40MG PER DAY
  9. METHADONE HCL [Concomitant]
     Dosage: 10MG TWICE PER DAY
  10. CHOLECALCIFEROL [Concomitant]
     Dosage: 25MCG PER DAY
  11. PERINDOPRIL [Concomitant]
     Dosage: 2.5MG PER DAY
  12. TEMAZEPAM [Concomitant]
     Dosage: 10MG PER DAY
  13. CEPHALEXIN [Concomitant]
     Dosage: 500MG FOUR TIMES PER DAY
  14. CALCIUM CARBONATE [Concomitant]
     Dosage: 600MG PER DAY
  15. ONDANSETRON [Concomitant]
     Dosage: 4MG THREE TIMES PER DAY

REACTIONS (4)
  - INJURY [None]
  - NAIL INFECTION [None]
  - OSTEOPENIA [None]
  - PUBIC RAMI FRACTURE [None]
